FAERS Safety Report 26043369 (Version 1)
Quarter: 2025Q4

REPORT INFORMATION
  Report Type: Spontaneous
  Country: US (occurrence: US)
  Receive Date: 20251113
  Receipt Date: 20251113
  Transmission Date: 20260117
  Serious: No
  Sender: MERCK SHARP & DOHME LLC
  Company Number: US-009507513-2347087

PATIENT
  Sex: Male

DRUGS (12)
  1. WINREVAIR [Suspect]
     Active Substance: SOTATERCEPT-CSRK
     Indication: Pulmonary arterial hypertension
     Route: 058
     Dates: start: 2025
  2. WINREVAIR [Suspect]
     Active Substance: SOTATERCEPT-CSRK
  3. WINREVAIR [Suspect]
     Active Substance: SOTATERCEPT-CSRK
  4. WINREVAIR [Suspect]
     Active Substance: SOTATERCEPT-CSRK
  5. AMLODIPINE [Concomitant]
     Active Substance: AMLODIPINE BESYLATE
  6. ASPIRIN [Concomitant]
     Active Substance: ASPIRIN
  7. ELIQUIS [Concomitant]
     Active Substance: APIXABAN
  8. LAXOPEG [Concomitant]
  9. TADALAFIL [Concomitant]
     Active Substance: TADALAFIL
  10. CRESTOR [Concomitant]
     Active Substance: ROSUVASTATIN CALCIUM
  11. METOPROLOL ALBUTEROL INHALER [Concomitant]
  12. LASIX [Concomitant]
     Active Substance: FUROSEMIDE

REACTIONS (4)
  - Epistaxis [Unknown]
  - Insomnia [Unknown]
  - Nasal obstruction [Unknown]
  - Dyspnoea [Unknown]

NARRATIVE: CASE EVENT DATE: 20250101
